FAERS Safety Report 10236394 (Version 1)
Quarter: 2014Q2

REPORT INFORMATION
  Report Type: Report from Study
  Country: BR (occurrence: BR)
  Receive Date: 20140613
  Receipt Date: 20140613
  Transmission Date: 20141212
  Serious: No
  Sender: FDA-Public Use
  Company Number: PHHY2014BR071583

PATIENT
  Sex: Female
  Weight: 49 kg

DRUGS (7)
  1. ONBREZ [Suspect]
     Indication: PNEUMOTHORAX
     Dosage: 1 DF (ONCE AT NIGHT)
     Route: 055
     Dates: start: 201403
  2. ONBREZ [Suspect]
     Indication: DYSPNOEA
     Dosage: UNK UKN, UNK
  3. ONBREZ [Suspect]
     Indication: OFF LABEL USE
  4. ONBREZ [Suspect]
     Indication: DETOXIFICATION
  5. RIVOTRIL [Concomitant]
     Indication: INSOMNIA
     Dosage: 2 MG, UNK
  6. RIVOTRIL [Concomitant]
     Indication: ANXIETY
  7. OXIMAX [Concomitant]
     Dosage: UNK UKN, UNK

REACTIONS (4)
  - Dyspnoea [Not Recovered/Not Resolved]
  - Condition aggravated [Unknown]
  - Influenza [Not Recovered/Not Resolved]
  - Secretion discharge [Not Recovered/Not Resolved]
